FAERS Safety Report 21308692 (Version 3)
Quarter: 2022Q3

REPORT INFORMATION
  Report Type: Report from Study
  Country: US (occurrence: US)
  Receive Date: 20220908
  Receipt Date: 20220919
  Transmission Date: 20221026
  Serious: No
  Sender: FDA-Public Use
  Company Number: US-NOVARTISTESTPH-NVSC2022US194524

PATIENT
  Sex: Female

DRUGS (1)
  1. ENTRESTO [Suspect]
     Active Substance: SACUBITRIL\VALSARTAN
     Indication: Arterial occlusive disease
     Dosage: UNK
     Route: 065

REACTIONS (3)
  - Cough [Unknown]
  - Chest pain [Unknown]
  - Product use in unapproved indication [Unknown]
